FAERS Safety Report 9639847 (Version 1)
Quarter: 2013Q4

REPORT INFORMATION
  Report Type: Spontaneous
  Country: US (occurrence: None)
  Receive Date: 20131021
  Receipt Date: 20131021
  Transmission Date: 20140711
  Serious: Yes (Hospitalization)
  Sender: FDA-Public Use
  Company Number: None

PATIENT
  Age: 39 Year
  Sex: Male
  Weight: 99.79 kg

DRUGS (1)
  1. ALBUTEROL SULFATE [Suspect]
     Dosage: AS NEEDED INHALATION

REACTIONS (2)
  - Bronchospasm [None]
  - Product taste abnormal [None]
